FAERS Safety Report 8607395-3 (Version None)
Quarter: 2012Q3

REPORT INFORMATION
  Report Type: 
  Country: None (occurrence: None)
  Receive Date: 20120726
  Receipt Date: 20120716
  Transmission Date: 20120928
  Serious: Yes (Hospitalization)
  Sender: FDA-Public Use
  Company Number: 2012032901

PATIENT
  Age: 13 Year
  Sex: Female

DRUGS (18)
  1. AZITHROMYCIN [Concomitant]
  2. ALBUTEROL SULFATE [Concomitant]
  3. COLECALCIFEROL (COLECALCIFEROL) [Concomitant]
  4. CREON [Concomitant]
  5. SLO-PHYLLIN (AMIONPHYLLINE) [Concomitant]
  6. TOBRAMYCIN [Concomitant]
  7. IMMUNE GLOBULIN INTRAVENOUS (HUMAN) [Suspect]
     Indication: HYPOGAMMAGLOBULINAEMIA
     Dosage: 25 MG TOTAL
     Dates: start: 20120530
  8. PULMOZYME [Concomitant]
  9. URSODIOL [Concomitant]
  10. TARGOCID [Suspect]
     Indication: STAPHYLOCOCCAL INFECTION
     Dosage: 400 MG QD
     Route: 042
     Dates: start: 20120528, end: 20120611
  11. PHYTONADIONE [Concomitant]
  12. ACETAMINOPHEN [Concomitant]
  13. VITAMIN A + D (VITAMINDAYNE A AND D) [Concomitant]
  14. VITAMIN E [Concomitant]
  15. CEFTAZIDIME [Concomitant]
  16. OMEPRAZOLE [Concomitant]
  17. SEPETIDE [Concomitant]
  18. TAURINE (TAURINE) [Concomitant]

REACTIONS (11)
  - ABNORMAL BEHAVIOUR [None]
  - BLOOD POTASSIUM INCREASED [None]
  - MALAISE [None]
  - APHAGIA [None]
  - BLOOD CREATININE INCREASED [None]
  - LYMPHOCYTE COUNT DECREASED [None]
  - SERUM SICKNESS [None]
  - PYREXIA [None]
  - FEELING ABNORMAL [None]
  - DISSEMINATED INTRAVASCULAR COAGULATION [None]
  - RENAL IMPAIRMENT [None]
